FAERS Safety Report 12831234 (Version 1)
Quarter: 2016Q4

REPORT INFORMATION
  Report Type: Spontaneous
  Country: US (occurrence: US)
  Receive Date: 20161008
  Receipt Date: 20161008
  Transmission Date: 20170207
  Serious: Yes (Other)
  Sender: FDA-Public Use
  Company Number: US-AMGEN-USASP2016122822

PATIENT
  Age: 67 Year
  Sex: Female
  Weight: 116.1 kg

DRUGS (14)
  1. REPATHA [Suspect]
     Active Substance: EVOLOCUMAB
     Indication: CORONARY ARTERY DISEASE
     Dosage: 140 MG, Q2WK
     Route: 058
     Dates: start: 20160620
  2. PRILOSEC [Concomitant]
     Active Substance: OMEPRAZOLE MAGNESIUM
  3. IMDUR [Concomitant]
     Active Substance: ISOSORBIDE MONONITRATE
  4. INSULIN [Concomitant]
     Active Substance: INSULIN NOS
  5. NORVASC [Concomitant]
     Active Substance: AMLODIPINE BESYLATE
  6. CELEXA [Concomitant]
     Active Substance: CITALOPRAM HYDROBROMIDE
  7. REPATHA [Suspect]
     Active Substance: EVOLOCUMAB
     Indication: DRUG INTOLERANCE
  8. REPATHA [Suspect]
     Active Substance: EVOLOCUMAB
     Indication: HYPERLIPIDAEMIA
  9. COREG [Concomitant]
     Active Substance: CARVEDILOL
  10. NITROSTAT [Concomitant]
     Active Substance: NITROGLYCERIN
  11. TICAGRELOR [Concomitant]
     Active Substance: TICAGRELOR
  12. XANAX [Concomitant]
     Active Substance: ALPRAZOLAM
  13. SYNTHROID [Concomitant]
     Active Substance: LEVOTHYROXINE SODIUM
  14. ZETIA [Concomitant]
     Active Substance: EZETIMIBE

REACTIONS (2)
  - Low density lipoprotein increased [Recovering/Resolving]
  - Therapy non-responder [Unknown]

NARRATIVE: CASE EVENT DATE: 20160815
